FAERS Safety Report 12744357 (Version 4)
Quarter: 2016Q4

REPORT INFORMATION
  Report Type: Spontaneous
  Country: US (occurrence: US)
  Receive Date: 20160914
  Receipt Date: 20161108
  Transmission Date: 20170207
  Serious: Yes (Disabling, Other)
  Sender: FDA-Public Use
  Company Number: US-ROCHE-1830331

PATIENT
  Age: 79 Year
  Sex: Male
  Weight: 89.89 kg

DRUGS (12)
  1. VITAMIN C [Concomitant]
     Active Substance: ASCORBIC ACID
  2. SIMVASTATIN. [Concomitant]
     Active Substance: SIMVASTATIN
  3. TRAZODONE [Concomitant]
     Active Substance: TRAZODONE HYDROCHLORIDE
  4. NIFEDIAC CC [Concomitant]
     Active Substance: NIFEDIPINE
  5. ESBRIET [Suspect]
     Active Substance: PIRFENIDONE
     Indication: IDIOPATHIC PULMONARY FIBROSIS
     Dosage: 801MG ORAL TID
     Route: 048
     Dates: start: 20150808
  6. ESBRIET [Suspect]
     Active Substance: PIRFENIDONE
     Route: 048
     Dates: start: 20150807, end: 20160826
  7. TAMSULOSIN HCL [Concomitant]
     Active Substance: TAMSULOSIN
  8. ASPIRIN. [Concomitant]
     Active Substance: ASPIRIN
  9. MELATONIN PLUS [Concomitant]
  10. CALCIUM CITRATE [Concomitant]
     Active Substance: CALCIUM CITRATE
  11. FISH OIL [Concomitant]
     Active Substance: FISH OIL
  12. ATENOLOL. [Concomitant]
     Active Substance: ATENOLOL

REACTIONS (4)
  - Epistaxis [Unknown]
  - Cardiac disorder [Recovered/Resolved]
  - Epistaxis [Unknown]
  - Chest pain [Not Recovered/Not Resolved]

NARRATIVE: CASE EVENT DATE: 20160826
